FAERS Safety Report 14529554 (Version 1)
Quarter: 2018Q1

REPORT INFORMATION
  Report Type: Spontaneous
  Country: PT (occurrence: PT)
  Receive Date: 20180214
  Receipt Date: 20180214
  Transmission Date: 20180509
  Serious: Yes (Death, Life-Threatening, Other)
  Sender: FDA-Public Use
  Company Number: PT-WEST-WARD PHARMACEUTICALS CORP.-PT-H14001-18-00957

PATIENT
  Age: 12 Year
  Sex: Female
  Weight: 30 kg

DRUGS (4)
  1. CITALOXAN [Suspect]
     Active Substance: CYTARABINE
     Indication: ACUTE MYELOID LEUKAEMIA
     Route: 042
     Dates: start: 20180126, end: 20180127
  2. MITOXANTRONE BAXTER [Concomitant]
     Indication: ACUTE MYELOID LEUKAEMIA
     Route: 042
     Dates: start: 20180127, end: 20180127
  3. HIDROXYUREA [Concomitant]
     Indication: NEOPLASM RECURRENCE
     Route: 065
     Dates: start: 20180110, end: 20180124
  4. GEMTUZUMAB OZOGAMICIN [Suspect]
     Active Substance: GEMTUZUMAB OZOGAMICIN
     Indication: ACUTE MYELOID LEUKAEMIA
     Route: 042
     Dates: start: 20180125, end: 20180125

REACTIONS (5)
  - Multiple organ dysfunction syndrome [Fatal]
  - Gastrointestinal inflammation [Not Recovered/Not Resolved]
  - Hypovolaemic shock [Not Recovered/Not Resolved]
  - Neoplasm progression [Fatal]
  - Hepatotoxicity [Not Recovered/Not Resolved]

NARRATIVE: CASE EVENT DATE: 20180126
